FAERS Safety Report 18856432 (Version 3)
Quarter: 2021Q2

REPORT INFORMATION
  Report Type: Spontaneous
  Country: TJ (occurrence: TJ)
  Receive Date: 20210207
  Receipt Date: 20210414
  Transmission Date: 20210717
  Serious: Yes (Other)
  Sender: FDA-Public Use
  Company Number: TJ-JNJFOC-20210146020

PATIENT
  Age: 17 Year
  Sex: Female
  Weight: 54 kg

DRUGS (6)
  1. CYCLOSERINE. [Suspect]
     Active Substance: CYCLOSERINE
     Indication: PULMONARY TUBERCULOSIS
     Route: 065
     Dates: start: 20210109, end: 20210121
  2. TMC207 [Suspect]
     Active Substance: BEDAQUILINE
     Route: 048
     Dates: start: 20210109
  3. TMC207 [Suspect]
     Active Substance: BEDAQUILINE
     Indication: PULMONARY TUBERCULOSIS
     Dosage: 400MG DAILY FOR 2 WEEKS.
     Route: 048
     Dates: start: 20201021
  4. CLOFAZIMINE [Suspect]
     Active Substance: CLOFAZIMINE
     Indication: PULMONARY TUBERCULOSIS
     Route: 065
     Dates: start: 20201021, end: 20210108
  5. LEVOFLOXACIN. [Suspect]
     Active Substance: LEVOFLOXACIN
     Indication: PULMONARY TUBERCULOSIS
     Route: 065
     Dates: start: 20210109
  6. CLOFAZIMINE [Suspect]
     Active Substance: CLOFAZIMINE
     Route: 065
     Dates: start: 20210109

REACTIONS (4)
  - Product use issue [Unknown]
  - Headache [Recovered/Resolved]
  - Off label use [Unknown]
  - Tremor [Recovering/Resolving]

NARRATIVE: CASE EVENT DATE: 20210118
